FAERS Safety Report 9416044 (Version 2)
Quarter: 2013Q3

REPORT INFORMATION
  Report Type: Spontaneous
  Country: US (occurrence: US)
  Receive Date: 20130724
  Receipt Date: 20130809
  Transmission Date: 20140515
  Serious: No
  Sender: FDA-Public Use
  Company Number: US-009507513-1307USA010700

PATIENT
  Age: 75 Year
  Sex: Female

DRUGS (3)
  1. PROVENTIL [Suspect]
     Indication: DYSPNOEA
     Dosage: 2 DF, UNK
     Route: 055
     Dates: end: 20130716
  2. PROVENTIL [Suspect]
     Dosage: UNK
     Route: 055
     Dates: start: 20130718
  3. BENICAR [Concomitant]

REACTIONS (2)
  - Drug ineffective [Recovered/Resolved]
  - Drug ineffective [Unknown]
